FAERS Safety Report 10993202 (Version 10)
Quarter: 2020Q3

REPORT INFORMATION
  Report Type: Report from Study
  Country: CA (occurrence: CA)
  Receive Date: 20150407
  Receipt Date: 20200813
  Transmission Date: 20201102
  Serious: Yes (Death, Other)
  Sender: FDA-Public Use
  Company Number: PHHY2014CA047249

PATIENT
  Age: 85 Year
  Sex: Male

DRUGS (6)
  1. SANDOSTATIN LAR DEPOT [Suspect]
     Active Substance: OCTREOTIDE ACETATE
     Dosage: 60 MG, QMO (EVERY 4 WEEKS)
     Route: 030
  2. SANDOSTATIN LAR DEPOT [Suspect]
     Active Substance: OCTREOTIDE ACETATE
     Dosage: 30 MG, QMO (EVERY 4 WEEKS)
     Route: 030
     Dates: start: 20180612
  3. SANDOSTATIN LAR DEPOT [Suspect]
     Active Substance: OCTREOTIDE ACETATE
     Indication: NEUROENDOCRINE TUMOUR
     Dosage: 30 MG, QMO (EVERY 4 WEEKS)
     Route: 030
     Dates: start: 20140317
  4. SANDOSTATIN LAR DEPOT [Suspect]
     Active Substance: OCTREOTIDE ACETATE
     Dosage: 30 MG, QMO (EVERY 4 WEEKS)
     Route: 030
     Dates: start: 20160321
  5. SANDOSTATIN LAR DEPOT [Suspect]
     Active Substance: OCTREOTIDE ACETATE
     Dosage: 60 MG, QMO (EVERY 28 DAYS)
     Route: 030
     Dates: start: 20171127
  6. BISOPROLOL [Concomitant]
     Active Substance: BISOPROLOL
     Indication: PRODUCT USED FOR UNKNOWN INDICATION
     Dosage: UNK
     Route: 065

REACTIONS (30)
  - Neuroendocrine tumour [Recovering/Resolving]
  - Sinusitis [Unknown]
  - Skin lesion [Unknown]
  - Heart rate decreased [Unknown]
  - Flushing [Unknown]
  - Blood glucose increased [Unknown]
  - Asthenia [Unknown]
  - Injection site discomfort [Unknown]
  - Platelet count decreased [Unknown]
  - Nausea [Recovered/Resolved]
  - Sepsis [Fatal]
  - Hypothyroidism [Unknown]
  - Purpura senile [Unknown]
  - Body temperature decreased [Unknown]
  - Diarrhoea [Not Recovered/Not Resolved]
  - Tooth infection [Unknown]
  - Vomiting [Recovered/Resolved]
  - Injection site pain [Unknown]
  - Blood pressure systolic increased [Unknown]
  - Vertigo [Unknown]
  - Tooth disorder [Unknown]
  - Fatigue [Unknown]
  - Post procedural complication [Recovered/Resolved]
  - Blood pressure diastolic decreased [Unknown]
  - Anxiety [Unknown]
  - Blood pressure fluctuation [Unknown]
  - Blood pressure increased [Unknown]
  - Malignant neoplasm progression [Recovering/Resolving]
  - Abdominal pain [Recovering/Resolving]
  - Decreased appetite [Unknown]

NARRATIVE: CASE EVENT DATE: 2014
